FAERS Safety Report 22097115 (Version 1)
Quarter: 2023Q1

REPORT INFORMATION
  Report Type: Spontaneous
  Country: US (occurrence: US)
  Receive Date: 20230315
  Receipt Date: 20230315
  Transmission Date: 20230418
  Serious: No
  Sender: FDA-Public Use
  Company Number: US-PADAGIS-2023PAD00258

PATIENT

DRUGS (1)
  1. TRETINOIN [Suspect]
     Active Substance: TRETINOIN
     Indication: Skin wrinkling
     Dosage: UNK
     Route: 065

REACTIONS (4)
  - Skin laceration [Unknown]
  - Skin disorder [Unknown]
  - Wrong technique in product usage process [Unknown]
  - Product prescribing issue [Unknown]
